FAERS Safety Report 23961250 (Version 3)
Quarter: 2024Q3

REPORT INFORMATION
  Report Type: Spontaneous
  Country: JP (occurrence: JP)
  Receive Date: 20240611
  Receipt Date: 20240820
  Transmission Date: 20241017
  Serious: Yes (Death, Life-Threatening, Hospitalization, Disabling, Other)
  Sender: BRACCO
  Company Number: JP-BAYER-2024A077446

PATIENT
  Age: 78 Year
  Sex: Female

DRUGS (21)
  1. IOPAMIRON [Suspect]
     Active Substance: IOPAMIDOL
     Indication: Angiogram
     Dosage: 80 ML, ONCE
     Route: 042
     Dates: start: 20240522, end: 20240522
  2. Anerem [Concomitant]
     Dosage: UNK
     Route: 042
     Dates: start: 20240522, end: 20240522
  3. CEFAZOLIN [Concomitant]
     Active Substance: CEFAZOLIN
     Dosage: UNK
     Route: 042
     Dates: start: 20240522, end: 20240522
  4. DESFLURANE [Concomitant]
     Active Substance: DESFLURANE
     Dosage: UNK ML
     Route: 055
     Dates: start: 20220522, end: 20220522
  5. EPHEDRINE JUNSEI [Concomitant]
     Dosage: UNK
     Route: 042
     Dates: start: 20240522, end: 20240522
  6. ROCURONIUM BROMIDE [Concomitant]
     Active Substance: ROCURONIUM BROMIDE
     Dosage: UNK
     Route: 042
     Dates: start: 20240522, end: 20240522
  7. FENTANYL [Concomitant]
     Active Substance: FENTANYL\FENTANYL CITRATE
     Dosage: UNK
     Route: 042
     Dates: start: 20240522, end: 20240522
  8. HEPARIN [Concomitant]
     Active Substance: HEPARIN SODIUM
     Dosage: 2 ML
  9. HEPARIN [Concomitant]
     Active Substance: HEPARIN SODIUM
     Dosage: 2 ML
  10. HEPARIN [Concomitant]
     Active Substance: HEPARIN SODIUM
     Dosage: 4 ML
  11. HEPARIN SODIUM [Concomitant]
     Active Substance: HEPARIN SODIUM
     Dosage: 1V
  12. DOPAMINE HYDROCHLORIDE [Concomitant]
     Active Substance: DOPAMINE HYDROCHLORIDE
     Dosage: UNK
     Route: 042
     Dates: start: 20240522, end: 20240522
  13. ISOTONIC SODIUM CHLORIDE SOLUTION [Concomitant]
     Active Substance: SODIUM CHLORIDE
     Dosage: UNK
     Route: 042
     Dates: start: 20240522, end: 20240522
  14. NEOSYNESIN [Concomitant]
     Active Substance: PHENYLEPHRINE HYDROCHLORIDE
     Dosage: UNK
     Route: 042
     Dates: start: 20240522, end: 20240522
  15. ISOSORBIDE DINITRATE [Concomitant]
     Active Substance: ISOSORBIDE DINITRATE
     Dosage: UNK
     Route: 042
     Dates: start: 20240522, end: 20240522
  16. NICARDIPINE HYDROCHLORIDE [Concomitant]
     Active Substance: NICARDIPINE HYDROCHLORIDE
     Dosage: UNK
     Route: 042
     Dates: start: 20240522, end: 20240522
  17. PROTAMINE SULFATE [Concomitant]
     Active Substance: PROTAMINE SULFATE
     Dosage: UNK
     Route: 042
     Dates: start: 20240522, end: 20240522
  18. REMIFENTANIL [Concomitant]
     Active Substance: REMIFENTANIL
     Dosage: 1V
  19. ROCURONIUM BROMIDE [Concomitant]
     Active Substance: ROCURONIUM BROMIDE
     Dosage: 2V
     Route: 042
     Dates: start: 20240522, end: 20240522
  20. SUPRANE [Concomitant]
     Active Substance: DESFLURANE
     Dosage: 29.55 ML
     Route: 055
     Dates: start: 20220522, end: 20220522
  21. XYLOCAINE [Concomitant]
     Active Substance: LIDOCAINE HYDROCHLORIDE\LIDOCAINE HYDROCHLORIDE ANHYDROUS
     Dosage: 1 BOTTLE

REACTIONS (13)
  - Contrast encephalopathy [Fatal]
  - Gastrointestinal haemorrhage [Fatal]
  - Intestinal ischaemia [Fatal]
  - Cardiac arrest [Fatal]
  - Gastrointestinal necrosis [Fatal]
  - Pancreatitis necrotising [Fatal]
  - Pulseless electrical activity [Recovering/Resolving]
  - Epilepsy [Unknown]
  - Infusion site extravasation [Unknown]
  - Delayed recovery from anaesthesia [Unknown]
  - Hepatic enzyme increased [Unknown]
  - Blood lactate dehydrogenase increased [Unknown]
  - Blood lactic acid increased [Unknown]

NARRATIVE: CASE EVENT DATE: 20240522
